FAERS Safety Report 5771548-2 (Version None)
Quarter: 2008Q2

REPORT INFORMATION
  Report Type: 
  Country: None (occurrence: None)
  Receive Date: 20080611
  Receipt Date: 20080526
  Transmission Date: 20081010
  Serious: Yes (Other)
  Sender: FDA-Public Use
  Company Number: 8033043

PATIENT
  Age: 15 Year
  Sex: Female

DRUGS (4)
  1. KEPPRA [Suspect]
     Dosage: 250 MG 1/W
  2. KEPPRA [Suspect]
     Dosage: 1000 MG /D
  3. LAMOTRIGINE [Concomitant]
  4. CLOBAZAM [Concomitant]

REACTIONS (3)
  - INTENTIONAL SELF-INJURY [None]
  - SELF-INJURIOUS IDEATION [None]
  - THINKING ABNORMAL [None]
